FAERS Safety Report 8167565-8 (Version None)
Quarter: 2012Q1

REPORT INFORMATION
  Report Type: 
  Country: None (occurrence: None)
  Receive Date: 20120227
  Receipt Date: 20120217
  Transmission Date: 20120608
  Serious: Yes (Other)
  Sender: FDA-Public Use
  Company Number: CN-ASTRAZENECA-2012SE10976

PATIENT

DRUGS (3)
  1. ESOMEPRAZOLE SODIUM [Suspect]
     Indication: HELICOBACTER TEST POSITIVE
     Route: 048
  2. LEVOFLOXACIN [Suspect]
     Indication: HELICOBACTER TEST POSITIVE
     Route: 048
  3. MOXICILLIN AND CLAVNLANARE POTASSIUM [Suspect]
     Indication: HELICOBACTER TEST POSITIVE
     Route: 048

REACTIONS (1)
  - VULVOVAGINAL CANDIDIASIS [None]
